FAERS Safety Report 4726246-0 (Version None)
Quarter: 2005Q3

REPORT INFORMATION
  Report Type: 
  Country: None (occurrence: None)
  Receive Date: 20050725
  Receipt Date: 20050713
  Transmission Date: 20060218
  Serious: Yes (Disabling)
  Sender: FDA-Public Use
  Company Number: 6016039

PATIENT
  Sex: Male

DRUGS (3)
  1. BISOMERCK                (BISOPROLOL FUMARATE) [Suspect]
     Indication: HYPERTENSION
  2. ENEAS (ENALAPRIL) [Suspect]
     Indication: HYPERTENSION
  3. DYNORM (CILAZAPRIL) [Suspect]
     Indication: HYPERTENSION

REACTIONS (2)
  - BLINDNESS [None]
  - RETINITIS PIGMENTOSA [None]
